FAERS Safety Report 18150684 (Version 2)
Quarter: 2020Q3

REPORT INFORMATION
  Report Type: Spontaneous
  Country: US (occurrence: US)
  Receive Date: 20200814
  Receipt Date: 20200903
  Transmission Date: 20201103
  Serious: Yes (Life-Threatening, Hospitalization, Other)
  Sender: FDA-Public Use
  Company Number: US-GLAXOSMITHKLINE-US2020159230

PATIENT

DRUGS (1)
  1. ALLI [Suspect]
     Active Substance: ORLISTAT
     Indication: PRODUCT USED FOR UNKNOWN INDICATION
     Dosage: UNK (TWO AND HALF WEEKS )
     Dates: start: 202007, end: 20200802

REACTIONS (6)
  - Abdominal infection [Unknown]
  - Appendicectomy [Recovering/Resolving]
  - Abdominal pain upper [Unknown]
  - Appendicitis perforated [Unknown]
  - Gastrointestinal infection [Unknown]
  - Constipation [Unknown]
